FAERS Safety Report 6112876-0 (Version None)
Quarter: 2009Q1

REPORT INFORMATION
  Report Type: 
  Country: None (occurrence: None)
  Receive Date: 20090312
  Receipt Date: 20090306
  Transmission Date: 20090719
  Serious: Yes (Hospitalization)
  Sender: FDA-Public Use
  Company Number: PHHY2009FR08448

PATIENT
  Sex: Male
  Weight: 94.3 kg

DRUGS (2)
  1. ERL 080A ERL+TAB [Suspect]
     Indication: IMMUNOSUPPRESSION
     Dosage: UNK
     Dates: start: 20070619
  2. NEORAL [Suspect]
     Indication: IMMUNOSUPPRESSION
     Dosage: UNK
     Dates: start: 20070620

REACTIONS (5)
  - ESCHERICHIA INFECTION [None]
  - INFLAMMATION [None]
  - PYREXIA [None]
  - RESPIRATORY TRACT INFECTION [None]
  - SEPSIS [None]
